FAERS Safety Report 16134505 (Version 2)
Quarter: 2019Q2

REPORT INFORMATION
  Report Type: Spontaneous
  Country: US (occurrence: US)
  Receive Date: 20190329
  Receipt Date: 20190427
  Transmission Date: 20190711
  Serious: No
  Sender: FDA-Public Use
  Company Number: US-BIOGEN-2019BI00717236

PATIENT
  Sex: Female

DRUGS (1)
  1. AVONEX [Suspect]
     Active Substance: INTERFERON BETA-1A
     Indication: MULTIPLE SCLEROSIS
     Route: 065
     Dates: start: 19980501

REACTIONS (5)
  - Herpes zoster [Unknown]
  - Injection site bruising [Recovered/Resolved]
  - Multiple sclerosis [Unknown]
  - Influenza like illness [Recovered/Resolved]
  - Therapeutic product effect decreased [Unknown]
